FAERS Safety Report 4392001-7 (Version None)
Quarter: 2004Q3

REPORT INFORMATION
  Report Type: 
  Country: None (occurrence: None)
  Receive Date: 20040701
  Receipt Date: 20040615
  Transmission Date: 20050211
  Serious: Yes (Hospitalization, Other)
  Sender: FDA-Public Use
  Company Number: US_0406103728

PATIENT
  Age: 69 Year
  Sex: Female
  Weight: 79 kg

DRUGS (6)
  1. ZYPREXA [Suspect]
     Indication: BIPOLAR DISORDER
     Dosage: 20 MG DAY
     Dates: end: 20040511
  2. RISPERIDONE [Concomitant]
  3. CARBAMAZEPINE [Concomitant]
  4. TRAZODONE HCL [Concomitant]
  5. FLUCONAZOLE [Concomitant]
  6. UNASYN (SULTAMICILLIN TOSILATE) [Concomitant]

REACTIONS (4)
  - BLOOD PRESSURE DECREASED [None]
  - BODY TEMPERATURE DECREASED [None]
  - BRADYCARDIA [None]
  - ILL-DEFINED DISORDER [None]
